FAERS Safety Report 5003679-9 (Version None)
Quarter: 2006Q2

REPORT INFORMATION
  Report Type: 
  Country: None (occurrence: None)
  Receive Date: 20060516
  Receipt Date: 20050414
  Transmission Date: 20061013
  Serious: Yes (Hospitalization)
  Sender: FDA-Public Use
  Company Number: US-MERCK-0504USA02753

PATIENT
  Age: 52 Year
  Sex: Female
  Weight: 118 kg

DRUGS (5)
  1. VIOXX [Suspect]
     Indication: INFLAMMATION
     Route: 048
     Dates: start: 20020401, end: 20040901
  2. VIOXX [Suspect]
     Route: 048
     Dates: start: 20040607, end: 20040806
  3. CELEBREX [Concomitant]
     Route: 065
     Dates: start: 20020101, end: 20030101
  4. SOMA [Concomitant]
     Route: 065
  5. VICODIN [Concomitant]
     Route: 065

REACTIONS (5)
  - BACK DISORDER [None]
  - INJURY [None]
  - INTERVERTEBRAL DISC DEGENERATION [None]
  - PHLEBITIS SUPERFICIAL [None]
  - PRESCRIBED OVERDOSE [None]
